FAERS Safety Report 9890400 (Version 1)
Quarter: 2014Q1

REPORT INFORMATION
  Report Type: Spontaneous
  Country: US (occurrence: None)
  Receive Date: 20140211
  Receipt Date: 20140211
  Transmission Date: 20141002
  Serious: Yes (Disabling)
  Sender: FDA-Public Use
  Company Number: None

PATIENT
  Age: 80 Year
  Sex: Female
  Weight: 68.95 kg

DRUGS (1)
  1. ZITHROMAX Z-PACK [Suspect]

REACTIONS (4)
  - Cardiac failure congestive [None]
  - Hypertension [None]
  - Atrial fibrillation [None]
  - Heart rate increased [None]
